FAERS Safety Report 9104297 (Version 2)
Quarter: 2013Q3

REPORT INFORMATION
  Report Type: Report from Study
  Country: NL (occurrence: NL)
  Receive Date: 20130219
  Receipt Date: 20130906
  Transmission Date: 20140515
  Serious: Yes (Hospitalization)
  Sender: FDA-Public Use
  Company Number: PHHY2013NL012142

PATIENT
  Age: 47 Year
  Sex: Female

DRUGS (2)
  1. FTY 720 [Suspect]
     Indication: MULTIPLE SCLEROSIS
     Dosage: 0.5 MG, QD
     Route: 048
     Dates: start: 20130107, end: 20130207
  2. SIFROL [Concomitant]
     Indication: MUSCLE SPASMS
     Dosage: 0.125 MG, QD
     Dates: start: 20110516

REACTIONS (4)
  - Cholelithiasis [Recovered/Resolved]
  - Biliary colic [Recovered/Resolved]
  - Chest discomfort [Unknown]
  - Malaise [Unknown]
